FAERS Safety Report 20964397 (Version 1)
Quarter: 2022Q2

REPORT INFORMATION
  Report Type: Report from Study
  Country: CA (occurrence: CA)
  Receive Date: 20220615
  Receipt Date: 20220615
  Transmission Date: 20220720
  Serious: Yes (Other)
  Sender: FDA-Public Use
  Company Number: CA-PFIZER INC-2021448838

PATIENT
  Age: 48 Year
  Sex: Female

DRUGS (23)
  1. METHOTREXATE SODIUM [Suspect]
     Active Substance: METHOTREXATE SODIUM
     Route: 065
  2. COSENTYX [Suspect]
     Active Substance: SECUKINUMAB
     Indication: Psoriatic arthropathy
     Dosage: 150 MG, WEEKLY
     Route: 058
  3. COSENTYX [Suspect]
     Active Substance: SECUKINUMAB
     Dosage: 300 MG, MONTHLY
     Route: 058
  4. COSENTYX [Suspect]
     Active Substance: SECUKINUMAB
     Indication: Psoriatic arthropathy
     Dosage: 150 MG, 1 EVERY 3 WEEKS
     Route: 058
  5. CLARITHROMYCIN [Suspect]
     Active Substance: CLARITHROMYCIN
     Dosage: 2 DF, 2X/DAY
     Route: 055
  6. AMOXICILLIN [Concomitant]
     Active Substance: AMOXICILLIN
     Dosage: 500 MG
     Route: 048
  7. AMOXICILLIN [Concomitant]
     Active Substance: AMOXICILLIN
     Dosage: UNK
     Route: 048
  8. CEFUROXIME AXETIL [Concomitant]
     Active Substance: CEFUROXIME AXETIL
     Dosage: 2 MG, 1X/DAY
     Route: 048
  9. CEFUROXIME AXETIL [Concomitant]
     Active Substance: CEFUROXIME AXETIL
     Dosage: 2 DF, 1X/DAY
     Route: 048
  10. CEPHALEXIN [Concomitant]
     Active Substance: CEPHALEXIN
     Dosage: 1 MG, 2X/DAY
     Route: 048
  11. CEPHALEXIN [Concomitant]
     Active Substance: CEPHALEXIN
     Dosage: 1 DF, 2X/DAY
     Route: 048
  12. CLARITHROMYCIN/RIFABUTIN [Concomitant]
     Dosage: UNK, 2X/DAY
     Route: 055
  13. CLONAZEPAM [Concomitant]
     Active Substance: CLONAZEPAM
     Dosage: 1 MG, 1X/DAY
     Route: 048
  14. CLONAZEPAM [Concomitant]
     Active Substance: CLONAZEPAM
     Dosage: 1 DF, 1X/DAY
  15. FLUTICASONE\FORMOTEROL [Concomitant]
     Active Substance: FLUTICASONE\FORMOTEROL
     Dosage: 125 UG
     Route: 065
  16. FLUTICASONE\FORMOTEROL [Concomitant]
     Active Substance: FLUTICASONE\FORMOTEROL
     Dosage: UNK
     Route: 065
  17. NAPROXEN [Concomitant]
     Active Substance: NAPROXEN
     Dosage: 1 MG, 1X/DAY
     Route: 048
  18. NAPROXEN [Concomitant]
     Active Substance: NAPROXEN
     Dosage: 1 DF, 1X/DAY
     Route: 048
  19. PLAQUENIL [Concomitant]
     Active Substance: HYDROXYCHLOROQUINE SULFATE
     Route: 065
  20. ALBUTEROL [Concomitant]
     Active Substance: ALBUTEROL
     Dosage: UNK, 1X/DAY
     Route: 048
  21. ALBUTEROL [Concomitant]
     Active Substance: ALBUTEROL
     Dosage: 1 UG, 1X/DAY
     Route: 048
  22. SULFAMETHOXAZOLE\TRIMETHOPRIM [Concomitant]
     Active Substance: SULFAMETHOXAZOLE\TRIMETHOPRIM
     Dosage: 960 MG
     Route: 065
  23. CELEBREX [Concomitant]
     Active Substance: CELECOXIB
     Dosage: UNK, 1X/DAY
     Route: 065

REACTIONS (7)
  - Treatment failure [Unknown]
  - Therapeutic response decreased [Unknown]
  - Fatigue [Unknown]
  - Gastrointestinal disorder [Unknown]
  - Photosensitivity reaction [Unknown]
  - Psoriatic arthropathy [Unknown]
  - Off label use [Unknown]
